FAERS Safety Report 7391728-2 (Version None)
Quarter: 2011Q2

REPORT INFORMATION
  Report Type: 
  Country: None (occurrence: None)
  Receive Date: 20110404
  Receipt Date: 20110321
  Transmission Date: 20111010
  Serious: Yes (Other)
  Sender: FDA-Public Use
  Company Number: US-JNJFOC-20101106291

PATIENT
  Sex: Female
  Weight: 54.43 kg

DRUGS (8)
  1. FLORINEF [Concomitant]
     Indication: HYPOTENSION
     Route: 048
  2. IMURAN [Concomitant]
     Indication: CROHN'S DISEASE
     Route: 048
  3. PENTASA [Concomitant]
     Indication: CROHN'S DISEASE
     Route: 048
  4. IMODIUM [Concomitant]
     Indication: CROHN'S DISEASE
     Route: 048
  5. ZOLOFT [Concomitant]
     Indication: CROHN'S DISEASE
     Route: 048
  6. MIDODRINE HYDROCHLORIDE [Concomitant]
     Indication: HYPOTENSION
     Route: 048
  7. REMICADE [Suspect]
     Indication: CROHN'S DISEASE
     Route: 042
  8. FOLIC ACID [Concomitant]
     Indication: CROHN'S DISEASE
     Route: 048

REACTIONS (9)
  - RASH [None]
  - PSORIASIS [None]
  - RASH MACULAR [None]
  - SKIN DISCOLOURATION [None]
  - SQUAMOUS CELL CARCINOMA [None]
  - WEIGHT INCREASED [None]
  - MEAN CELL HAEMOGLOBIN CONCENTRATION DECREASED [None]
  - SKIN EXFOLIATION [None]
  - MEAN CELL HAEMOGLOBIN DECREASED [None]
